FAERS Safety Report 13043376 (Version 1)
Quarter: 2016Q4

REPORT INFORMATION
  Report Type: Spontaneous
  Country: US (occurrence: US)
  Receive Date: 20161220
  Receipt Date: 20161220
  Transmission Date: 20170207
  Serious: No
  Sender: FDA-Public Use
  Company Number: US-BAUSCH-BL-2016-022642

PATIENT
  Age: 4 Year
  Sex: Male
  Weight: 20.43 kg

DRUGS (1)
  1. ZIANA [Suspect]
     Active Substance: CLINDAMYCIN PHOSPHATE\TRETINOIN
     Indication: SKIN PAPILLOMA
     Dosage: AS DIRECTED
     Route: 061
     Dates: start: 20160913

REACTIONS (5)
  - Rash erythematous [Recovering/Resolving]
  - Application site irritation [Recovering/Resolving]
  - Scratch [Recovering/Resolving]
  - Rash pruritic [Recovering/Resolving]
  - Expired product administered [Not Recovered/Not Resolved]

NARRATIVE: CASE EVENT DATE: 20160913
